FAERS Safety Report 5678593-6 (Version None)
Quarter: 2008Q1

REPORT INFORMATION
  Report Type: 
  Country: None (occurrence: None)
  Receive Date: 20080325
  Receipt Date: 20080312
  Transmission Date: 20080703
  Serious: Yes (Death, Hospitalization, Other)
  Sender: FDA-Public Use
  Company Number: IE-AMGEN-UK257587

PATIENT
  Sex: Male

DRUGS (4)
  1. NEULASTA [Suspect]
     Indication: CHEMOTHERAPY
     Route: 058
     Dates: start: 20071003
  2. FLUOROURACIL [Suspect]
     Route: 041
     Dates: start: 20070718
  3. LEUCOVORIN CALCIUM [Concomitant]
     Route: 041
     Dates: start: 20070718
  4. OXALIPLATIN [Concomitant]
     Route: 041
     Dates: start: 20070718

REACTIONS (7)
  - ASTHENIA [None]
  - DEATH [None]
  - DIARRHOEA [None]
  - MALAISE [None]
  - MALIGNANT NEOPLASM PROGRESSION [None]
  - NAUSEA [None]
  - VOMITING [None]
